FAERS Safety Report 9986377 (Version 1)
Quarter: 2014Q1

REPORT INFORMATION
  Report Type: Report from Study
  Country: US (occurrence: US)
  Receive Date: 20140307
  Receipt Date: 20140307
  Transmission Date: 20141002
  Serious: No
  Sender: FDA-Public Use
  Company Number: US-ABBVIE-13P-163-1088918-00

PATIENT
  Age: 50 Year
  Sex: Male

DRUGS (3)
  1. HUMIRA [Suspect]
     Indication: CROHN^S DISEASE
     Dates: start: 20130125
  2. HUMIRA [Suspect]
     Dates: start: 20130510
  3. OMEPRAZOLE [Concomitant]
     Indication: GASTROOESOPHAGEAL REFLUX DISEASE

REACTIONS (2)
  - Abdominal pain upper [Recovering/Resolving]
  - Drug effect decreased [Recovering/Resolving]
